FAERS Safety Report 8709078 (Version 3)
Quarter: 2012Q4

REPORT INFORMATION
  Report Type: 
  Country: PL (occurrence: PL)
  Receive Date: 20120806
  Receipt Date: 20120831
  Transmission Date: 20130627
  Serious: Yes (Other)
  Sender: FDA-Public Use
  Company Number: PL-ROCHE-1097170

PATIENT
  Sex: Female
  Weight: 56 kg

DRUGS (7)
  1. BONVIVA [Suspect]
     Indication: OSTEOPOROSIS
     Dosage: 3 mg/ml
     Route: 042
     Dates: start: 20120311
  2. PERINDOPRIL ERBUMINE [Concomitant]
     Dosage: Drug reported as Prestarium
     Route: 065
  3. LAMITRIN [Concomitant]
  4. OLFEN [Concomitant]
  5. TRAMADOL [Concomitant]
  6. APAP [Concomitant]
  7. CALPEROS [Concomitant]

REACTIONS (1)
  - Fracture [Unknown]
